FAERS Safety Report 7206487-3 (Version None)
Quarter: 2010Q4

REPORT INFORMATION
  Report Type: 
  Country: None (occurrence: None)
  Receive Date: 20101229
  Receipt Date: 20101229
  Transmission Date: 20110411
  Serious: Yes (Life-Threatening, Hospitalization)
  Sender: FDA-Public Use
  Company Number: None

PATIENT
  Age: 42 Year
  Sex: Male
  Weight: 81.6475 kg

DRUGS (1)
  1. EPINEPHRINE -ADRENALIN- TOPICAL 1:1000 [Suspect]
     Indication: EPISTAXIS
     Dosage: 30ML ONCE NASAL
     Route: 045
     Dates: start: 20080626, end: 20080626

REACTIONS (7)
  - CARDIAC ARREST [None]
  - HEART RATE INCREASED [None]
  - HYPERTENSION [None]
  - HYPOXIC-ISCHAEMIC ENCEPHALOPATHY [None]
  - POST PROCEDURAL COMPLICATION [None]
  - PULMONARY OEDEMA [None]
  - VENTRICULAR TACHYCARDIA [None]
